FAERS Safety Report 9107724 (Version 2)
Quarter: 2013Q2

REPORT INFORMATION
  Report Type: Spontaneous
  Country: BE (occurrence: BE)
  Receive Date: 20130221
  Receipt Date: 20130417
  Transmission Date: 20140414
  Serious: Yes (Hospitalization)
  Sender: FDA-Public Use
  Company Number: BE-BIOGENIDEC-2013BI014915

PATIENT
  Age: 32 Year
  Sex: Female

DRUGS (7)
  1. TYSABRI [Suspect]
     Indication: PRODUCT USED FOR UNKNOWN INDICATION
     Route: 042
     Dates: start: 20080601
  2. CYMBALTA [Concomitant]
     Route: 048
  3. AMANTAN [Concomitant]
     Route: 048
  4. TRANSTEC [Concomitant]
  5. NESTROLAN [Concomitant]
     Route: 048
  6. NORTRILEN [Concomitant]
     Route: 048
  7. RILATINE [Concomitant]

REACTIONS (2)
  - Gastroenteritis cryptosporidial [Recovered/Resolved]
  - Vomiting [Recovered/Resolved]
